FAERS Safety Report 7252620-7 (Version None)
Quarter: 2011Q1

REPORT INFORMATION
  Report Type: 
  Country: None (occurrence: None)
  Receive Date: 20110129
  Receipt Date: 20100422
  Transmission Date: 20110831
  Serious: No
  Sender: FDA-Public Use
  Company Number: US-ABBOTT-10P-163-0640205-00

PATIENT
  Sex: Female
  Weight: 96.702 kg

DRUGS (9)
  1. HUMIRA [Suspect]
     Indication: PSORIASIS
     Dates: start: 20100319
  2. ALERT [Concomitant]
     Indication: ASTHMA
  3. OXYCODONE [Concomitant]
     Indication: NECK PAIN
  4. OXYCODONE [Concomitant]
     Indication: PRODUCT USED FOR UNKNOWN INDICATION
  5. SINGULAIR [Concomitant]
     Indication: ASTHMA
  6. WELLBUTRIN [Concomitant]
     Indication: PRODUCT USED FOR UNKNOWN INDICATION
  7. ANTACID TAB [Concomitant]
     Indication: PRODUCT USED FOR UNKNOWN INDICATION
  8. OXYCODONE [Concomitant]
     Indication: MUSCULOSKELETAL PAIN
  9. UNKNOWN MEDICATION [Concomitant]
     Indication: BLOOD PRESSURE

REACTIONS (5)
  - PRODUCTIVE COUGH [None]
  - GLOSSODYNIA [None]
  - DRY THROAT [None]
  - GINGIVAL BLEEDING [None]
  - PSORIASIS [None]
